FAERS Safety Report 8922115 (Version 1)
Quarter: 2012Q4

REPORT INFORMATION
  Report Type: 
  Country: US (occurrence: US)
  Receive Date: 20121123
  Receipt Date: 20121123
  Transmission Date: 20130627
  Serious: Yes (Hospitalization, Other)
  Sender: FDA-Public Use
  Company Number: PHEH2012US022957

PATIENT
  Sex: Female

DRUGS (17)
  1. DIOVAN [Suspect]
     Dosage: 1 DF, daily PRN (20-40) mg
  2. METOPROLOL [Suspect]
  3. ALBUTEROL [Suspect]
  4. BETA BLOCKING AGENTS [Suspect]
  5. FUROSEMIDE [Concomitant]
  6. PANTOPRAZOLE [Concomitant]
  7. SPIRONOLACTONE [Concomitant]
  8. GABAPENTIN [Concomitant]
  9. PRAVASTATIN [Concomitant]
  10. WARFARIN [Concomitant]
  11. VITAMIN D [Concomitant]
  12. BECLOMETHASONE [Concomitant]
  13. CALCITONIN-SALMON [Concomitant]
  14. FISH OIL [Concomitant]
  15. MAGNESIUM [Concomitant]
  16. POTASSIUM [Concomitant]
  17. HYDROCODONE [Concomitant]

REACTIONS (9)
  - Pneumonia [Unknown]
  - Gastrointestinal necrosis [Unknown]
  - Osteonecrosis [Unknown]
  - Chronic obstructive pulmonary disease [Unknown]
  - Pulmonary thrombosis [Unknown]
  - Osteoporosis [Unknown]
  - Dyspnoea [Unknown]
  - Diarrhoea [Unknown]
  - Wrong technique in drug usage process [Unknown]
